FAERS Safety Report 9449867 (Version 2)
Quarter: 2013Q3

REPORT INFORMATION
  Report Type: Report from Study
  Country: NL (occurrence: NL)
  Receive Date: 20130809
  Receipt Date: 20130826
  Transmission Date: 20140515
  Serious: Yes (Death)
  Sender: FDA-Public Use
  Company Number: PHHY2013NL085500

PATIENT
  Age: 87 Year
  Sex: Female

DRUGS (7)
  1. ACLASTA [Suspect]
     Indication: OSTEOPOROTIC FRACTURE
     Dosage: 5 MG ONCE EVERY 52 WEEKS
     Route: 042
     Dates: start: 20120831
  2. BUDENOFALK [Concomitant]
     Dosage: 3 MG, TID
  3. OXAZEPAM [Concomitant]
     Dosage: 10 MG, QD
  4. CALCIUM D3                         /00944201/ [Concomitant]
     Dosage: 1 DF (500/800), QD
  5. OMEPRAZOLE [Concomitant]
     Dosage: 40 MG, QD
  6. PARACETAMOL [Concomitant]
     Dosage: 1000 MG, QID
  7. ZOPICLONE [Concomitant]
     Dosage: 7.5 MG, PRN

REACTIONS (1)
  - Death [Fatal]
